FAERS Safety Report 14789732 (Version 2)
Quarter: 2018Q2

REPORT INFORMATION
  Report Type: Spontaneous
  Country: US (occurrence: US)
  Receive Date: 20180423
  Receipt Date: 20180507
  Transmission Date: 20180711
  Serious: No
  Sender: FDA-Public Use
  Company Number: US-PFIZER INC-2018089715

PATIENT
  Age: 61 Year
  Sex: Male

DRUGS (2)
  1. XALKORI [Suspect]
     Active Substance: CRIZOTINIB
     Dosage: 250 MG, 2X/DAY
     Route: 048
     Dates: start: 2018, end: 2018
  2. XALKORI [Suspect]
     Active Substance: CRIZOTINIB
     Indication: NON-HODGKIN^S LYMPHOMA STAGE I
     Dosage: 250 MG, UNK
     Route: 048

REACTIONS (2)
  - Nausea [Unknown]
  - Product use in unapproved indication [Unknown]

NARRATIVE: CASE EVENT DATE: 2018
